FAERS Safety Report 13742212 (Version 1)
Quarter: 2017Q3

REPORT INFORMATION
  Report Type: Spontaneous
  Country: US (occurrence: US)
  Receive Date: 20170711
  Receipt Date: 20170711
  Transmission Date: 20171127
  Serious: Yes (Other)
  Sender: FDA-Public Use
  Company Number: US-SMITH AND NEPHEW, INC-2017SMT00492

PATIENT
  Age: 74 Year
  Sex: Male
  Weight: 95.24 kg

DRUGS (13)
  1. TRESIBA [Concomitant]
     Active Substance: INSULIN DEGLUDEC
  2. ^THYROXINE^ [Concomitant]
  3. AMLODIPINE [Concomitant]
     Active Substance: AMLODIPINE BESYLATE
  4. HUMALOG [Concomitant]
     Active Substance: INSULIN LISPRO
  5. PANTOPRAZOLE [Concomitant]
     Active Substance: PANTOPRAZOLE
  6. ASPIRIN. [Concomitant]
     Active Substance: ASPIRIN
     Dosage: 81 MG, UNK
  7. METOPROLOL. [Concomitant]
     Active Substance: METOPROLOL
     Dosage: 75 MG, UNK
  8. REGRANEX [Suspect]
     Active Substance: BECAPLERMIN
     Indication: DIABETIC ULCER
     Dosage: UNK, 1X/DAY FOR 12 HOURS ON AND 12 HOURS OFF
     Route: 061
     Dates: start: 20170602, end: 201706
  9. FENOFIBRATE. [Concomitant]
     Active Substance: FENOFIBRATE
  10. IRON [Concomitant]
     Active Substance: IRON
  11. BRILINTA [Concomitant]
     Active Substance: TICAGRELOR
  12. ROSUVASTATIN. [Concomitant]
     Active Substance: ROSUVASTATIN
  13. SODIUM POLYSTYRENE SULFATE [Concomitant]
     Dosage: UNK, 1X/WEEK

REACTIONS (3)
  - Wound infection [Unknown]
  - Renal disorder [Unknown]
  - Peripheral vascular disorder [Unknown]

NARRATIVE: CASE EVENT DATE: 201706
